FAERS Safety Report 25818694 (Version 3)
Quarter: 2025Q4

REPORT INFORMATION
  Report Type: Report from Study
  Country: US (occurrence: US)
  Receive Date: 20250918
  Receipt Date: 20251231
  Transmission Date: 20260117
  Serious: Yes (Hospitalization, Other)
  Sender: NOVARTIS
  Company Number: US-002147023-NVSC2024US198787

PATIENT
  Age: 34 Year
  Sex: Female

DRUGS (4)
  1. KESIMPTA [Suspect]
     Active Substance: OFATUMUMAB
     Indication: Multiple sclerosis
     Dosage: 20 MG, QMO
     Route: 042
     Dates: start: 20240913
  2. KESIMPTA [Suspect]
     Active Substance: OFATUMUMAB
     Dosage: 20 MG, QMO
     Route: 058
     Dates: start: 20240918
  3. KESIMPTA [Suspect]
     Active Substance: OFATUMUMAB
     Dosage: 20 MG, QMO (0.4 ML)
     Route: 030
  4. KESIMPTA [Suspect]
     Active Substance: OFATUMUMAB
     Dosage: 20 MG, QMO
     Route: 058
     Dates: start: 20251223, end: 20251230

REACTIONS (14)
  - Urinary tract infection [Unknown]
  - Haematochezia [Unknown]
  - Influenza [Unknown]
  - Feeling abnormal [Unknown]
  - Headache [Unknown]
  - Rhinorrhoea [Unknown]
  - Illness [Unknown]
  - Dizziness [Recovering/Resolving]
  - Visual impairment [Recovering/Resolving]
  - Nasal discomfort [Not Recovered/Not Resolved]
  - Sneezing [Not Recovered/Not Resolved]
  - Incorrect route of product administration [Unknown]
  - Skin laceration [Unknown]
  - Constipation [Unknown]

NARRATIVE: CASE EVENT DATE: 20241208
